FAERS Safety Report 10481786 (Version 5)
Quarter: 2014Q4

REPORT INFORMATION
  Report Type: Spontaneous
  Country: AU (occurrence: AU)
  Receive Date: 20140929
  Receipt Date: 20141024
  Transmission Date: 20150528
  Serious: Yes (Hospitalization, Other)
  Sender: FDA-Public Use
  Company Number: AU-PFIZER INC-2014265207

PATIENT
  Sex: Male

DRUGS (1)
  1. CHAMPIX [Suspect]
     Active Substance: VARENICLINE TARTRATE
     Dosage: UNK
     Dates: start: 20140915, end: 20140922

REACTIONS (17)
  - Musculoskeletal chest pain [Unknown]
  - Activities of daily living impaired [Unknown]
  - Chest pain [Not Recovered/Not Resolved]
  - Pain [Unknown]
  - Malaise [Unknown]
  - Arrhythmia [Not Recovered/Not Resolved]
  - Anxiety [Unknown]
  - Back pain [Unknown]
  - Fear [Unknown]
  - Parkinson^s disease [Unknown]
  - Hypotension [Unknown]
  - Depression [Unknown]
  - Insomnia [Unknown]
  - Anger [Unknown]
  - Heart rate increased [Not Recovered/Not Resolved]
  - Atrial flutter [Not Recovered/Not Resolved]
  - Dizziness [Unknown]

NARRATIVE: CASE EVENT DATE: 201409
